FAERS Safety Report 7604310-6 (Version None)
Quarter: 2011Q3

REPORT INFORMATION
  Report Type: 
  Country: None (occurrence: None)
  Receive Date: 20110712
  Receipt Date: 20110629
  Transmission Date: 20111222
  Serious: Yes (Hospitalization)
  Sender: FDA-Public Use
  Company Number: PHHY2011SE57440

PATIENT
  Sex: Female

DRUGS (4)
  1. RANITIDINE HCL [Suspect]
     Dosage: UNK UKN, UNK
     Dates: start: 20110104
  2. TIBINIDE [Concomitant]
  3. BETAPRED [Concomitant]
     Dosage: UNK UKN, UNK
  4. TEGRETOL [Suspect]
     Indication: MENINGIOMA MALIGNANT
     Dosage: UNK UKN, UNK
     Route: 048
     Dates: start: 20101209, end: 20110104

REACTIONS (9)
  - FUNGAL INFECTION [None]
  - CANDIDIASIS [None]
  - URINARY RETENTION [None]
  - ASPARTATE AMINOTRANSFERASE INCREASED [None]
  - TRANSAMINASES INCREASED [None]
  - RASH [None]
  - FATIGUE [None]
  - TONGUE COATED [None]
  - ALANINE AMINOTRANSFERASE INCREASED [None]
